FAERS Safety Report 14803176 (Version 4)
Quarter: 2018Q2

REPORT INFORMATION
  Report Type: Spontaneous
  Country: GR (occurrence: GR)
  Receive Date: 20180425
  Receipt Date: 20180608
  Transmission Date: 20180711
  Serious: Yes (Hospitalization, Other)
  Sender: FDA-Public Use
  Company Number: GR-UCBSA-2018017265

PATIENT
  Age: 16 Year
  Sex: Female

DRUGS (3)
  1. TEGRETOL [Concomitant]
     Active Substance: CARBAMAZEPINE
     Indication: PRODUCT USED FOR UNKNOWN INDICATION
  2. DEPAKINE [Concomitant]
     Active Substance: VALPROATE SODIUM
     Indication: GENERALISED TONIC-CLONIC SEIZURE
     Dosage: UNK
     Dates: start: 201802, end: 20180328
  3. KEPPRA [Suspect]
     Active Substance: LEVETIRACETAM
     Indication: GENERALISED TONIC-CLONIC SEIZURE
     Dosage: 500 MG, 3X/DAY (TID)
     Route: 048
     Dates: start: 201802

REACTIONS (5)
  - Drug ineffective [Unknown]
  - Seizure cluster [Not Recovered/Not Resolved]
  - Encephalitis autoimmune [Unknown]
  - Intentional product misuse [Unknown]
  - Generalised tonic-clonic seizure [Unknown]

NARRATIVE: CASE EVENT DATE: 2018
